FAERS Safety Report 10661141 (Version 5)
Quarter: 2015Q3

REPORT INFORMATION
  Report Type: Report from Study
  Country: US (occurrence: US)
  Receive Date: 20141218
  Receipt Date: 20150806
  Transmission Date: 20151125
  Serious: No
  Sender: FDA-Public Use
  Company Number: US-BIOGENIDEC-2014BI132115

PATIENT
  Age: 66 Year
  Sex: Female

DRUGS (2)
  1. TYSABRI [Suspect]
     Active Substance: NATALIZUMAB
     Indication: MULTIPLE SCLEROSIS
     Route: 042
     Dates: start: 20141222
  2. TYSABRI [Suspect]
     Active Substance: NATALIZUMAB
     Indication: MULTIPLE SCLEROSIS
     Route: 042
     Dates: start: 20100804, end: 20140409

REACTIONS (5)
  - Stress [Recovered/Resolved]
  - Contusion [Unknown]
  - Emotional disorder [Not Recovered/Not Resolved]
  - Muscular weakness [Recovered/Resolved]
  - Loss of control of legs [Unknown]

NARRATIVE: CASE EVENT DATE: 2014
